FAERS Safety Report 8282559-X (Version None)
Quarter: 2012Q2

REPORT INFORMATION
  Report Type: 
  Country: None (occurrence: None)
  Receive Date: 20120413
  Receipt Date: 20120404
  Transmission Date: 20120825
  Serious: Yes (Hospitalization)
  Sender: FDA-Public Use
  Company Number: DE-PFIZER INC-2012051954

PATIENT
  Age: 77 Year
  Sex: Female
  Weight: 64 kg

DRUGS (8)
  1. ETOPOSIDE [Suspect]
     Indication: ACUTE MYELOID LEUKAEMIA
     Dosage: 173 MG, UNK
     Dates: start: 20120126, end: 20120128
  2. TAZOBACTAM [Concomitant]
     Dosage: 13.5 MG, UNK
     Route: 042
     Dates: start: 20120128, end: 20120211
  3. ACICLOVIR [Concomitant]
     Dosage: 750 MG, UNK
     Route: 042
     Dates: start: 20120128
  4. CYTARABINE [Suspect]
     Indication: ACUTE MYELOID LEUKAEMIA
     Dosage: 173 MG, UNK
     Dates: start: 20120126, end: 20120202
  5. ATRACURIUM BESYLATE [Concomitant]
     Indication: ACUTE MYELOID LEUKAEMIA
     Dosage: 90MG/30MG PER DAY
     Dates: start: 20120205, end: 20120215
  6. GEMTUZUMAB OZOGAMICIN [Suspect]
     Indication: ACUTE MYELOID LEUKAEMIA
     Dosage: 5.19 MG, UNK
     Dates: start: 20120120, end: 20120120
  7. IDARUBICIN HCL [Suspect]
     Indication: ACUTE MYELOID LEUKAEMIA
     Dosage: 17.3 MG, UNK
     Dates: start: 20120126, end: 20120128
  8. DIFLUCAN [Concomitant]
     Dosage: 200 MG, UNK
     Route: 048
     Dates: start: 20120124, end: 20120211

REACTIONS (1)
  - SEPSIS [None]
